FAERS Safety Report 25761967 (Version 1)
Quarter: 2025Q3

REPORT INFORMATION
  Report Type: Spontaneous
  Country: US (occurrence: None)
  Receive Date: 20250904
  Receipt Date: 20250904
  Transmission Date: 20251021
  Serious: Yes (Life-Threatening, Hospitalization, Disabling)
  Sender: FDA-CTU
  Company Number: None

PATIENT
  Age: 82 Year
  Sex: Female
  Weight: 56.7 kg

DRUGS (17)
  1. KEYTRUDA [Suspect]
     Active Substance: PEMBROLIZUMAB
  2. Fiasp Flax Touch [Concomitant]
  3. TRESIBA [Concomitant]
     Active Substance: INSULIN DEGLUDEC
  4. Formoterol fumarate (USE IN MACHINE) [Concomitant]
  5. Yupelri  (USE IN MACHINE) [Concomitant]
  6. ALBUTEROL (USE IN MACHINE) [Concomitant]
  7. ELIQUES [Concomitant]
  8. LEVOTHYROXINE [Concomitant]
     Active Substance: LEVOTHYROXINE
  9. ATORVASTATIN [Concomitant]
     Active Substance: ATORVASTATIN
  10. AMYLOIDOSISNE [Concomitant]
  11. OMEPRAZOLE [Concomitant]
     Active Substance: OMEPRAZOLE
  12. PAIN CREAM/LIDOCAINE [Concomitant]
  13. UNSPECIFIED INGREDIENT [Concomitant]
     Active Substance: UNSPECIFIED INGREDIENT
  14. TYLENOL [Concomitant]
     Active Substance: ACETAMINOPHEN
  15. NITROGLYCERIN [Concomitant]
     Active Substance: NITROGLYCERIN
  16. NASTOP [Concomitant]
  17. TRAMADOL [Concomitant]
     Active Substance: TRAMADOL

REACTIONS (4)
  - Type 2 diabetes mellitus [None]
  - Pancreatic disorder [None]
  - Emotional distress [None]
  - Loss of personal independence in daily activities [None]

NARRATIVE: CASE EVENT DATE: 20250201
